FAERS Safety Report 8926974 (Version 3)
Quarter: 2013Q2

REPORT INFORMATION
  Report Type: Spontaneous
  Country: US (occurrence: US)
  Receive Date: 20121127
  Receipt Date: 20130418
  Transmission Date: 20140414
  Serious: Yes (Other)
  Sender: FDA-Public Use
  Company Number: US-009507513-1210USA012804

PATIENT
  Sex: Female
  Weight: 68.48 kg

DRUGS (3)
  1. JANUVIA [Suspect]
     Indication: TYPE 2 DIABETES MELLITUS
     Dosage: 100MG, ONCE PER DAY
     Route: 048
     Dates: start: 200912, end: 2011
  2. JANUVIA [Suspect]
     Dosage: 50 MG, QD
     Route: 048
     Dates: start: 20110328, end: 201105
  3. MAGNETIC RESONANCE IMAGING CONTRAST MEDIA (UNSPECIFIED) [Suspect]
     Indication: NUCLEAR MAGNETIC RESONANCE IMAGING
     Dosage: UNK
     Dates: start: 2009

REACTIONS (57)
  - Hepatic failure [Not Recovered/Not Resolved]
  - Alpha 1 foetoprotein increased [Unknown]
  - Dyspnoea [Recovered/Resolved]
  - Lung disorder [Not Recovered/Not Resolved]
  - Abdominal pain upper [Not Recovered/Not Resolved]
  - Headache [Not Recovered/Not Resolved]
  - Back pain [Not Recovered/Not Resolved]
  - Blood alkaline phosphatase increased [Unknown]
  - Essential hypertension [Unknown]
  - Muscle spasms [Unknown]
  - Dysgeusia [Unknown]
  - Drug dose omission [Unknown]
  - Treatment noncompliance [Recovered/Resolved]
  - Diabetes mellitus inadequate control [Recovering/Resolving]
  - Non-cardiac chest pain [Not Recovered/Not Resolved]
  - Dizziness [Unknown]
  - Incorrect dose administered [Unknown]
  - Alpha 1 foetoprotein increased [Unknown]
  - Adverse drug reaction [Unknown]
  - Abdominal pain [Not Recovered/Not Resolved]
  - Road traffic accident [Unknown]
  - Fibromyalgia [Recovering/Resolving]
  - Spinal osteoarthritis [Unknown]
  - Hiatus hernia [Unknown]
  - Incorrect drug administration duration [Unknown]
  - Depression [Unknown]
  - Menopausal symptoms [Unknown]
  - Diabetes mellitus inadequate control [Not Recovered/Not Resolved]
  - Musculoskeletal chest pain [Recovered/Resolved]
  - Drug dose omission [Unknown]
  - Neck pain [Unknown]
  - Inappropriate schedule of drug administration [Unknown]
  - Musculoskeletal chest pain [Unknown]
  - Memory impairment [Unknown]
  - Skin lesion [Recovered/Resolved]
  - Skin lesion [Not Recovered/Not Resolved]
  - Exostosis [Not Recovered/Not Resolved]
  - Hypoglycaemia [Recovered/Resolved]
  - Rash [Unknown]
  - Road traffic accident [Unknown]
  - Calcinosis [Unknown]
  - Cerebral cyst [Unknown]
  - Pain [Not Recovered/Not Resolved]
  - Depression [Unknown]
  - Neuropathy peripheral [Unknown]
  - Alpha 1 foetoprotein increased [Unknown]
  - Thrombocytopenia [Unknown]
  - Anxiety [Unknown]
  - Inflammation [Recovering/Resolving]
  - Leukopenia [Unknown]
  - Haematuria [Unknown]
  - Gastric disorder [Not Recovered/Not Resolved]
  - Renal disorder [Not Recovered/Not Resolved]
  - Rash [Unknown]
  - Joint lock [Unknown]
  - Bone neoplasm [Unknown]
  - Abasia [Unknown]
